FAERS Safety Report 9204043 (Version 1)
Quarter: 2013Q1

REPORT INFORMATION
  Report Type: Spontaneous
  Country: US (occurrence: None)
  Receive Date: 20130329
  Receipt Date: 20130329
  Transmission Date: 20140127
  Serious: No
  Sender: FDA-Public Use
  Company Number: None

PATIENT
  Age: 14 Year
  Sex: Male
  Weight: 98 kg

DRUGS (7)
  1. DAPSONE [Suspect]
     Indication: ANTIFUNGAL PROPHYLAXIS
     Route: 048
     Dates: start: 20121029, end: 20121129
  2. CALCIUM CARBONATE [Concomitant]
  3. DOCUSATE SODIUM [Concomitant]
  4. EMLA CREAM [Concomitant]
  5. LORAZEPAM 2 MG [Concomitant]
  6. MAGNESIUM OXIDE [Concomitant]
  7. PROMETHAZINE [Concomitant]

REACTIONS (2)
  - Fluid retention [None]
  - Pulmonary mass [None]
